FAERS Safety Report 21315426 (Version 1)
Quarter: 2022Q3

REPORT INFORMATION
  Report Type: Spontaneous
  Country: CO (occurrence: CO)
  Receive Date: 20220909
  Receipt Date: 20220909
  Transmission Date: 20221026
  Serious: Yes (Other)
  Sender: FDA-Public Use
  Company Number: CO-BAYER-2022A126231

PATIENT
  Sex: Female

DRUGS (1)
  1. NEXAVAR [Suspect]
     Active Substance: SORAFENIB

REACTIONS (13)
  - Cystitis [None]
  - Bacterial test positive [None]
  - Immunodeficiency [None]
  - Occult blood [None]
  - Palpitations [None]
  - Tachycardia [None]
  - Abdominal pain upper [None]
  - Onychoclasis [None]
  - Blister [None]
  - Crying [None]
  - Screaming [None]
  - Hypertension [None]
  - Hypersensitivity [None]
